FAERS Safety Report 8507869-X (Version None)
Quarter: 2012Q3

REPORT INFORMATION
  Report Type: 
  Country: None (occurrence: None)
  Receive Date: 20120713
  Receipt Date: 20120710
  Transmission Date: 20120928
  Serious: Yes (Hospitalization)
  Sender: FDA-Public Use
  Company Number: PHHY2012DE059551

PATIENT
  Age: 20 Year
  Sex: Female

DRUGS (1)
  1. RIAMET [Suspect]
     Dosage: UNK
     Route: 048

REACTIONS (2)
  - AGGRESSION [None]
  - PSYCHOTIC DISORDER [None]
